FAERS Safety Report 15727126 (Version 1)
Quarter: 2018Q4

REPORT INFORMATION
  Report Type: Spontaneous
  Country: ES (occurrence: ES)
  Receive Date: 20181217
  Receipt Date: 20181217
  Transmission Date: 20190205
  Serious: Yes (Other)
  Sender: FDA-Public Use
  Company Number: ES-TEVA-2018-ES-987006

PATIENT
  Age: 73 Year
  Sex: Female

DRUGS (3)
  1. ELIQUIS [Suspect]
     Active Substance: APIXABAN
     Route: 048
     Dates: start: 201803
  2. BISOPROLOL (2328A) [Suspect]
     Active Substance: BISOPROLOL
     Route: 048
     Dates: start: 201312
  3. AMIODARONA (392A) [Suspect]
     Active Substance: AMIODARONE
     Route: 065
     Dates: start: 201308

REACTIONS (1)
  - Hepatitis acute [Unknown]

NARRATIVE: CASE EVENT DATE: 201808
